FAERS Safety Report 14854628 (Version 1)
Quarter: 2018Q2

REPORT INFORMATION
  Report Type: Spontaneous
  Country: ES (occurrence: ES)
  Receive Date: 20180507
  Receipt Date: 20180507
  Transmission Date: 20180711
  Serious: Yes (Other)
  Sender: FDA-Public Use
  Company Number: ES-MYLANLABS-2018M1028137

PATIENT
  Age: 56 Year
  Sex: Male

DRUGS (6)
  1. TOUJEO [Suspect]
     Active Substance: INSULIN GLARGINE
     Dosage: 1 UNK, UNK
     Route: 058
  2. PARACETAMOL W/TRAMADOL [Concomitant]
     Active Substance: ACETAMINOPHEN\TRAMADOL
     Indication: TYPE 2 DIABETES MELLITUS
     Route: 048
  3. SOLOSTAR [Suspect]
     Active Substance: DEVICE
     Indication: TYPE 2 DIABETES MELLITUS
     Dosage: 1 UNK, UNK
  4. IBUPROFEN. [Suspect]
     Active Substance: IBUPROFEN
     Indication: FRACTURE PAIN
     Route: 048
  5. SOLOSTAR [Suspect]
     Active Substance: DEVICE
     Dosage: 1 UNK, UNK
     Dates: start: 201705
  6. TOUJEO [Suspect]
     Active Substance: INSULIN GLARGINE
     Indication: TYPE 2 DIABETES MELLITUS
     Dosage: 32 IU, UNK
     Route: 058
     Dates: start: 201705

REACTIONS (3)
  - Glycosylated haemoglobin increased [Unknown]
  - Hypoglycaemia [Recovered/Resolved]
  - Chest pain [Recovered/Resolved]

NARRATIVE: CASE EVENT DATE: 201802
